FAERS Safety Report 7532248-1 (Version None)
Quarter: 2011Q2

REPORT INFORMATION
  Report Type: 
  Country: None (occurrence: None)
  Receive Date: 20110607
  Receipt Date: 20110607
  Transmission Date: 20111010
  Serious: Yes (Other)
  Sender: FDA-Public Use
  Company Number: None

PATIENT
  Sex: Female
  Weight: 63.5036 kg

DRUGS (1)
  1. PROLIA [Suspect]
     Indication: OSTEOARTHRITIS
     Dosage: 60MG Q6MONTHS SUBCUTANEOUSLY
     Route: 058
     Dates: start: 20101101, end: 20110501

REACTIONS (1)
  - INTRAOCULAR PRESSURE INCREASED [None]
